FAERS Safety Report 9772102 (Version 1)
Quarter: 2013Q4

REPORT INFORMATION
  Report Type: Spontaneous
  Country: US (occurrence: US)
  Receive Date: 20131219
  Receipt Date: 20131219
  Transmission Date: 20140711
  Serious: Yes (Hospitalization)
  Sender: FDA-Public Use
  Company Number: US-JNJFOC-20131207671

PATIENT
  Sex: Female

DRUGS (7)
  1. NUCYNTA IR [Suspect]
     Indication: UTERINE CANCER
     Dosage: TWICE A DAY
     Route: 048
     Dates: start: 201309, end: 201311
  2. OXYCONTIN [Suspect]
     Indication: PRODUCT USED FOR UNKNOWN INDICATION
     Dosage: TWICE A DAY
     Route: 048
     Dates: start: 201311
  3. OXYCONTIN [Suspect]
     Indication: PRODUCT USED FOR UNKNOWN INDICATION
     Dosage: TWICE A DAY
     Route: 048
     Dates: start: 201311, end: 201311
  4. OXYCONTIN [Suspect]
     Indication: PRODUCT USED FOR UNKNOWN INDICATION
     Dosage: TWICE A DAY
     Route: 048
     Dates: start: 201311, end: 201311
  5. NEURONTIN [Concomitant]
     Indication: NEUROPATHY PERIPHERAL
     Dosage: THREE TIMES A DAY
     Route: 048
  6. OMEPRAZOLE [Concomitant]
     Indication: GASTROOESOPHAGEAL REFLUX DISEASE
     Route: 048
  7. TOPROL [Concomitant]
     Indication: PRODUCT USED FOR UNKNOWN INDICATION
     Dosage: ONCE A DAY
     Route: 048

REACTIONS (5)
  - Abdominal pain [Unknown]
  - Disease progression [Unknown]
  - Adverse event [Unknown]
  - Off label use [Unknown]
  - Somnolence [Unknown]
